FAERS Safety Report 23272518 (Version 1)
Quarter: 2023Q4

REPORT INFORMATION
  Report Type: Report from Study
  Country: US (occurrence: US)
  Receive Date: 20231207
  Receipt Date: 20231207
  Transmission Date: 20240110
  Serious: Yes (Other)
  Sender: FDA-Public Use
  Company Number: US-SUN PHARMACEUTICAL INDUSTRIES LTD-2023R1-422440

PATIENT
  Sex: Male

DRUGS (1)
  1. CLOZAPINE [Suspect]
     Active Substance: CLOZAPINE
     Indication: Schizophrenia
     Dosage: 150 MILLIGRAM, DAILY AT BEDTIME
     Route: 065

REACTIONS (6)
  - Hallucination, auditory [Unknown]
  - Soliloquy [Unknown]
  - Inappropriate affect [Unknown]
  - Initial insomnia [Unknown]
  - Product dose omission issue [Unknown]
  - Headache [Unknown]
